FAERS Safety Report 6881948-5 (Version None)
Quarter: 2010Q3

REPORT INFORMATION
  Report Type: 
  Country: None (occurrence: None)
  Receive Date: 20100727
  Receipt Date: 20100712
  Transmission Date: 20110219
  Serious: Yes (Death, Hospitalization)
  Sender: FDA-Public Use
  Company Number: GB-MYLANLABS-2010S1010717

PATIENT
  Age: 72 Year
  Sex: Female
  Weight: 109 kg

DRUGS (6)
  1. WARFARIN [Suspect]
     Indication: ATRIAL FIBRILLATION
     Route: 048
  2. FRAGMIN [Suspect]
     Indication: ATRIAL FIBRILLATION
     Route: 058
     Dates: end: 20100525
  3. AMIODARONE HCL [Concomitant]
     Indication: ATRIAL FIBRILLATION
     Route: 048
  4. CANDESARTAN [Concomitant]
     Indication: HYPERTENSION
     Route: 048
     Dates: end: 20100525
  5. ESOMEPRAZOLE MAGNESIUM [Concomitant]
     Indication: GASTRIC DISORDER
     Route: 048
  6. FUROSEMIDE [Concomitant]
     Indication: FLUID IMBALANCE
     Route: 048
     Dates: end: 20100525

REACTIONS (3)
  - FALL [None]
  - INTRACRANIAL PRESSURE INCREASED [None]
  - SUBDURAL HAEMORRHAGE [None]
